FAERS Safety Report 7677006-2 (Version None)
Quarter: 2011Q3

REPORT INFORMATION
  Report Type: 
  Country: None (occurrence: None)
  Receive Date: 20110811
  Receipt Date: 20110803
  Transmission Date: 20111222
  Serious: Yes (Death)
  Sender: FDA-Public Use
  Company Number: US-NOVOPROD-328568

PATIENT
  Sex: Male
  Weight: 85.714 kg

DRUGS (36)
  1. LORATADINE [Concomitant]
     Indication: PRODUCT USED FOR UNKNOWN INDICATION
     Dosage: 10 MG, UNK
     Dates: start: 20090112, end: 20090112
  2. DILTIAZEM HYDROCHLORIDE [Concomitant]
     Indication: PRODUCT USED FOR UNKNOWN INDICATION
     Dosage: 180 MG, UNK
     Dates: start: 20090414, end: 20090414
  3. LEVOTHYROXINE SODIUM [Concomitant]
     Indication: PRODUCT USED FOR UNKNOWN INDICATION
     Dosage: 75 MG, UNK
     Dates: start: 20090112, end: 20090112
  4. ATENOLOL [Concomitant]
     Dosage: 50 MG, UNK
     Dates: start: 20090310, end: 20090310
  5. LORATADINE [Concomitant]
     Dosage: 10 MG, UNK
     Dates: start: 20090414, end: 20090414
  6. MULTIVITAMIN                       /00097801/ [Concomitant]
     Indication: PRODUCT USED FOR UNKNOWN INDICATION
     Dosage: UNK
     Dates: start: 20090112, end: 20090112
  7. REGLAN [Concomitant]
     Indication: PRODUCT USED FOR UNKNOWN INDICATION
     Dosage: 5 MG, BID
     Dates: start: 20090413, end: 20090414
  8. FUROSEMIDE [Concomitant]
     Indication: PRODUCT USED FOR UNKNOWN INDICATION
     Dosage: 20 MG, UNK
     Dates: start: 20090112, end: 20090112
  9. LORATADINE [Concomitant]
     Dosage: 10 MG, UNK
     Dates: start: 20090310, end: 20090310
  10. CALCIUM CARBONATE [Concomitant]
     Dosage: UNK
     Dates: start: 20090310, end: 20090310
  11. CALCIUM CARBONATE [Concomitant]
     Dosage: UNK
     Dates: start: 20090414, end: 20090414
  12. FLOMAX [Concomitant]
     Indication: PRODUCT USED FOR UNKNOWN INDICATION
     Dosage: 0.4 MG, UNK
     Dates: start: 20090112, end: 20090112
  13. ASPIRIN [Concomitant]
     Dosage: 81 MG, UNK
     Dates: start: 20090310, end: 20090310
  14. CALCIUM CARBONATE [Concomitant]
     Indication: PRODUCT USED FOR UNKNOWN INDICATION
     Dosage: UNK
     Dates: start: 20090112, end: 20090112
  15. OSTEO BI-FLEX [Concomitant]
     Dosage: UNK
     Dates: start: 20090310, end: 20090310
  16. FUROSEMIDE [Concomitant]
     Dosage: 20 MG, UNK
     Dates: start: 20090310, end: 20090310
  17. CITALOPRAM [Concomitant]
     Indication: PRODUCT USED FOR UNKNOWN INDICATION
     Dosage: 20 MG, UNK
     Dates: start: 20090112, end: 20090112
  18. CITALOPRAM [Concomitant]
     Dosage: 20 MG, UNK
     Dates: start: 20090310, end: 20090310
  19. ASPIRIN [Concomitant]
     Indication: PRODUCT USED FOR UNKNOWN INDICATION
     Dosage: 81 MG, UNK
     Dates: start: 20090112, end: 20090112
  20. LANTUS [Concomitant]
     Indication: TYPE 2 DIABETES MELLITUS
     Dosage: UNK
     Route: 058
  21. LEVOTHYROXINE SODIUM [Concomitant]
     Dosage: 75 MG, UNK
     Dates: start: 20090310, end: 20090310
  22. LEVOTHYROXINE SODIUM [Concomitant]
     Dosage: 75 MG, UNK
     Dates: start: 20090414, end: 20090414
  23. ATENOLOL [Concomitant]
     Indication: PRODUCT USED FOR UNKNOWN INDICATION
     Dosage: 50 MG, UNK
     Dates: start: 20090112, end: 20090112
  24. ATENOLOL [Concomitant]
     Dosage: 50 MG, UNK
     Dates: start: 20090414, end: 20090414
  25. MICARDIS [Concomitant]
     Dosage: 180 MG, UNK
     Dates: start: 20090310, end: 20090310
  26. MICARDIS [Concomitant]
     Dosage: 180 MG, UNK
     Dates: start: 20090414, end: 20090414
  27. FLOMAX [Concomitant]
     Dosage: 0.4 MG, UNK
     Dates: start: 20090414, end: 20090414
  28. ASPIRIN [Concomitant]
     Dosage: 81 MG, UNK
     Dates: start: 20090414, end: 20090414
  29. OSTEO BI-FLEX [Concomitant]
     Dosage: UNK
     Dates: start: 20090112, end: 20090112
  30. NOVOLOG [Suspect]
     Indication: TYPE 2 DIABETES MELLITUS
     Dosage: UNK U, QD
     Route: 058
     Dates: end: 20100801
  31. MICARDIS [Concomitant]
     Indication: PRODUCT USED FOR UNKNOWN INDICATION
     Dosage: 180 MG, UNK
     Dates: start: 20090112, end: 20090112
  32. GLUCOSAMINE [Concomitant]
     Indication: PRODUCT USED FOR UNKNOWN INDICATION
  33. FUROSEMIDE [Concomitant]
     Dosage: 20 MG, UNK
     Dates: start: 20090414, end: 20090414
  34. CITALOPRAM [Concomitant]
     Dosage: 20 MG, UNK
     Dates: start: 20090414, end: 20090414
  35. FLOMAX [Concomitant]
     Dosage: 0.4 MG, UNK
     Dates: start: 20090310, end: 20090310
  36. MULTIVITAMIN                       /00097801/ [Concomitant]
     Dosage: UNK
     Dates: start: 20090310, end: 20090310

REACTIONS (7)
  - HYPERTENSION [None]
  - DIABETIC NEUROPATHY [None]
  - DIABETIC COMPLICATION [None]
  - BLOOD DISORDER [None]
  - CORONARY ARTERY DISEASE [None]
  - MYELOFIBROSIS [None]
  - ANAEMIA [None]
